FAERS Safety Report 4544005-9 (Version None)
Quarter: 2004Q4

REPORT INFORMATION
  Report Type: 
  Country: None (occurrence: None)
  Receive Date: 20041229
  Receipt Date: 20041229
  Transmission Date: 20050328
  Serious: Yes (Life-Threatening)
  Sender: FDA-Public Use
  Company Number: None

PATIENT
  Age: 65 Year
  Sex: Female
  Weight: 89 kg

DRUGS (3)
  1. TARCEVA [Suspect]
     Indication: BRONCHIOLOALVEOLAR CARCINOMA
     Dosage: 150 MG QD ORAL
     Route: 048
     Dates: start: 20041118, end: 20041225
  2. TARCEVA [Suspect]
     Indication: NON-SMALL CELL LUNG CANCER
     Dosage: 150 MG QD ORAL
     Route: 048
     Dates: start: 20041118, end: 20041225
  3. LOVENOX [Concomitant]

REACTIONS (14)
  - ACTIVATED PARTIAL THROMBOPLASTIN TIME PROLONGED [None]
  - ATAXIA [None]
  - CEREBRAL INFARCTION [None]
  - CONFUSIONAL STATE [None]
  - DEEP VEIN THROMBOSIS [None]
  - DISSEMINATED INTRAVASCULAR COAGULATION [None]
  - EJECTION FRACTION DECREASED [None]
  - HYPERCOAGULATION [None]
  - MENTAL STATUS CHANGES [None]
  - MYOCARDIAL INFARCTION [None]
  - NAUSEA [None]
  - VENTRICULAR HYPOKINESIA [None]
  - VOMITING [None]
  - WHITE BLOOD CELL COUNT INCREASED [None]
